FAERS Safety Report 9148750 (Version 1)
Quarter: 2013Q1

REPORT INFORMATION
  Report Type: Spontaneous
  Country: CN (occurrence: CN)
  Receive Date: 20130308
  Receipt Date: 20130308
  Transmission Date: 20140127
  Serious: Yes (Other)
  Sender: FDA-Public Use
  Company Number: CN-JNJFOC-20130301266

PATIENT
  Sex: Male
  Weight: 6 kg

DRUGS (2)
  1. IBUPROFEN [Suspect]
     Route: 048
  2. IBUPROFEN [Suspect]
     Indication: UPPER RESPIRATORY TRACT INFECTION
     Route: 048
     Dates: start: 20090413, end: 20090413

REACTIONS (3)
  - Rash [Recovering/Resolving]
  - Pruritus generalised [Unknown]
  - Generalised erythema [Unknown]
